FAERS Safety Report 11125630 (Version 4)
Quarter: 2015Q3

REPORT INFORMATION
  Report Type: Spontaneous
  Country: ES (occurrence: ES)
  Receive Date: 20150520
  Receipt Date: 20150807
  Transmission Date: 20151125
  Serious: Yes (Life-Threatening, Hospitalization, Other)
  Sender: FDA-Public Use
  Company Number: ES-ABBVIE-15P-144-1389984-00

PATIENT
  Age: 71 Year
  Sex: Female

DRUGS (5)
  1. ALDACTONE [Concomitant]
     Active Substance: SPIRONOLACTONE
     Indication: ASCITES
     Route: 065
  2. EXVIERA [Suspect]
     Active Substance: DASABUVIR
     Indication: HEPATITIS C
     Route: 048
     Dates: start: 20150411, end: 20150614
  3. RIBAVIRIN. [Suspect]
     Active Substance: RIBAVIRIN
     Indication: HEPATITIS C
     Route: 048
     Dates: start: 201504, end: 20150615
  4. TEVETENS PLUS [Concomitant]
     Indication: PRODUCT USED FOR UNKNOWN INDICATION
     Route: 065
     Dates: end: 201505
  5. VIEKIRAX [Suspect]
     Active Substance: OMBITASVIR\PARITAPREVIR\RITONAVIR
     Indication: HEPATITIS C
     Route: 048
     Dates: start: 20150411, end: 20150614

REACTIONS (22)
  - Cachexia [Not Recovered/Not Resolved]
  - Portal hypertension [Unknown]
  - Malnutrition [Recovering/Resolving]
  - Rhabdomyolysis [Recovering/Resolving]
  - Malaise [Not Recovered/Not Resolved]
  - Encephalopathy [Recovering/Resolving]
  - Cholelithiasis [Not Recovered/Not Resolved]
  - Meningioma [Not Recovered/Not Resolved]
  - Varices oesophageal [Unknown]
  - Fluid retention [Recovering/Resolving]
  - Fatigue [Unknown]
  - Hepatic function abnormal [Recovering/Resolving]
  - Hepatic cancer [Not Recovered/Not Resolved]
  - Muscle atrophy [Recovering/Resolving]
  - Hepatocellular carcinoma [Not Recovered/Not Resolved]
  - Waist circumference increased [Unknown]
  - Nephrolithiasis [Not Recovered/Not Resolved]
  - Bilirubin conjugated increased [Recovering/Resolving]
  - Hepatic failure [Unknown]
  - Inappropriate antidiuretic hormone secretion [Recovering/Resolving]
  - Hyponatraemia [Recovered/Resolved]
  - Blood bilirubin increased [Recovering/Resolving]

NARRATIVE: CASE EVENT DATE: 2015
